FAERS Safety Report 25118724 (Version 1)
Quarter: 2025Q1

REPORT INFORMATION
  Report Type: Spontaneous
  Country: PL (occurrence: PL)
  Receive Date: 20250325
  Receipt Date: 20250325
  Transmission Date: 20250408
  Serious: Yes (Life-Threatening, Other)
  Sender: SANDOZ
  Company Number: PL-SUN PHARMACEUTICAL INDUSTRIES LTD-2025RR-499296

PATIENT
  Age: 67 Year
  Sex: Male

DRUGS (2)
  1. CISPLATIN [Suspect]
     Active Substance: CISPLATIN
     Indication: Lung adenocarcinoma
     Route: 065
  2. PEMETREXED [Suspect]
     Active Substance: PEMETREXED
     Indication: Lung adenocarcinoma
     Route: 065

REACTIONS (4)
  - Pulmonary embolism [Unknown]
  - Right ventricular failure [Recovering/Resolving]
  - Thrombosis [Unknown]
  - Asthenia [Unknown]
